FAERS Safety Report 23744519 (Version 1)
Quarter: 2024Q2

REPORT INFORMATION
  Report Type: Spontaneous
  Country: US (occurrence: US)
  Receive Date: 20240415
  Receipt Date: 20240415
  Transmission Date: 20240715
  Serious: Yes (Other)
  Sender: FDA-Public Use
  Company Number: US-La Jolla Pharmaceutical Company-2023TP000034

PATIENT
  Sex: Male

DRUGS (1)
  1. XERAVA [Suspect]
     Active Substance: ERAVACYCLINE DIHYDROCHLORIDE
     Indication: Product used for unknown indication

REACTIONS (1)
  - Pancreatitis [Recovering/Resolving]
